FAERS Safety Report 8002205 (Version 3)
Quarter: 2012Q4

REPORT INFORMATION
  Report Type: Report from Study
  Country: US (occurrence: US)
  Receive Date: 20110622
  Receipt Date: 20121127
  Transmission Date: 20130627
  Serious: Yes (Other)
  Sender: FDA-Public Use
  Company Number: US-ABBOTT-11P-163-0732790-00

PATIENT
  Sex: Male
  Weight: 89.89 kg

DRUGS (7)
  1. HUMIRA 40 MG/0.8 ML PEN [Suspect]
     Indication: PSORIASIS
     Route: 058
     Dates: start: 201007, end: 201201
  2. HUMIRA 40 MG/0.8 ML PEN [Suspect]
     Route: 058
     Dates: start: 20121105
  3. NORVASC [Concomitant]
     Indication: HYPERTENSION
  4. TOPROL [Concomitant]
     Indication: HYPERTENSION
  5. NEXIUM [Concomitant]
     Indication: GASTROOESOPHAGEAL REFLUX DISEASE
  6. NEXIUM [Concomitant]
     Indication: FLATULENCE
  7. NEURONTIN [Concomitant]
     Indication: RESTLESS LEGS SYNDROME

REACTIONS (5)
  - Arthralgia [Recovered/Resolved]
  - Meniscus injury [Recovered/Resolved]
  - Cartilage injury [Recovered/Resolved]
  - Laceration [Recovered/Resolved]
  - Wound infection [Recovered/Resolved]
